FAERS Safety Report 6600200-6 (Version None)
Quarter: 2010Q1

REPORT INFORMATION
  Report Type: 
  Country: None (occurrence: None)
  Receive Date: 20100224
  Receipt Date: 20100215
  Transmission Date: 20100710
  Serious: Yes (Other)
  Sender: FDA-Public Use
  Company Number: B0634741A

PATIENT
  Age: 78 Year
  Sex: Male

DRUGS (7)
  1. ALKERAN [Suspect]
     Indication: DIFFUSE LARGE B-CELL LYMPHOMA
     Route: 042
  2. CARBOPLATIN [Concomitant]
     Route: 065
  3. ETOPOSIDE [Concomitant]
     Route: 065
  4. CYTARABINE [Concomitant]
     Route: 065
  5. METHYLPREDNISOLONE 4MG TAB [Concomitant]
     Route: 065
  6. RITUXIMAB [Concomitant]
     Route: 065
  7. ANTIMICROBIAL [Concomitant]
     Route: 065

REACTIONS (5)
  - DECREASED APPETITE [None]
  - FEBRILE NEUTROPENIA [None]
  - HERPES ZOSTER [None]
  - NAUSEA [None]
  - NEUTROPHIL COUNT DECREASED [None]
